FAERS Safety Report 7461430-7 (Version None)
Quarter: 2011Q2

REPORT INFORMATION
  Report Type: 
  Country: None (occurrence: None)
  Receive Date: 20110428
  Receipt Date: 20110420
  Transmission Date: 20111010
  Serious: No
  Sender: FDA-Public Use
  Company Number: 2011-00200

PATIENT
  Age: 37 Year
  Sex: Male
  Weight: 124.7392 kg

DRUGS (1)
  1. ZICAM COLD REMEDY PLUS LIQUI-LOZ [Suspect]
     Dosage: 1 DOSE
     Dates: start: 20110420, end: 20110420

REACTIONS (1)
  - AGEUSIA [None]
